FAERS Safety Report 9835473 (Version 1)
Quarter: 2014Q1

REPORT INFORMATION
  Report Type: Spontaneous
  Country: US (occurrence: US)
  Receive Date: 20140122
  Receipt Date: 20140122
  Transmission Date: 20141002
  Serious: No
  Sender: FDA-Public Use
  Company Number: US-BRISTOL-MYERS SQUIBB COMPANY-19649797

PATIENT
  Age: 76 Year
  Sex: Male

DRUGS (15)
  1. ELIQUIS [Suspect]
  2. ASPIRIN [Suspect]
  3. OMEGA-3 [Concomitant]
     Dosage: OMEGA6 AND OMEGA9
  4. LISINOPRIL [Concomitant]
  5. CARVEDILOL [Concomitant]
  6. OMEPRAZOLE [Concomitant]
  7. FOLIC ACID [Concomitant]
  8. SIMCOR [Concomitant]
  9. AMLODIPINE [Concomitant]
  10. GLUCOSAMINE [Concomitant]
  11. MULTIVITAMIN [Concomitant]
  12. VITAMIN B12 [Concomitant]
  13. CALCIUM [Concomitant]
  14. ASPIRIN [Concomitant]
  15. IRON [Concomitant]

REACTIONS (1)
  - Wound haemorrhage [Unknown]
